FAERS Safety Report 5112675-2 (Version None)
Quarter: 2006Q3

REPORT INFORMATION
  Report Type: 
  Country: None (occurrence: None)
  Receive Date: 20060922
  Receipt Date: 20010409
  Transmission Date: 20061208
  Serious: Yes (Other)
  Sender: FDA-Public Use
  Company Number: US-GLAXOSMITHKLINE-A0346375A

PATIENT
  Age: 31 Year
  Sex: Female

DRUGS (4)
  1. PAXIL [Suspect]
     Indication: PANIC ATTACK
     Route: 048
  2. ALCOHOL [Suspect]
     Route: 048
  3. ZOLOFT [Suspect]
  4. ALPRAZOLAM [Suspect]

REACTIONS (9)
  - AGITATION [None]
  - DEPRESSION [None]
  - HOMICIDE [None]
  - LOSS OF CONSCIOUSNESS [None]
  - OVERDOSE [None]
  - POISONING [None]
  - PSYCHOTIC DISORDER [None]
  - RESTLESSNESS [None]
  - SUICIDAL IDEATION [None]
